FAERS Safety Report 17082743 (Version 1)
Quarter: 2019Q4

REPORT INFORMATION
  Report Type: Spontaneous
  Country: DE (occurrence: DE)
  Receive Date: 20191127
  Receipt Date: 20191127
  Transmission Date: 20200122
  Serious: Yes (Other)
  Sender: FDA-Public Use
  Company Number: DE-US-PROVELL PHARMACEUTICALS LLC-E2B_90071074

PATIENT
  Sex: Female

DRUGS (2)
  1. EUTHYROX 88 NF [Suspect]
     Active Substance: LEVOTHYROXINE SODIUM
     Indication: PRODUCT USED FOR UNKNOWN INDICATION
     Dates: start: 2019, end: 201909
  2. EUTHYROX 88 NF [Suspect]
     Active Substance: LEVOTHYROXINE SODIUM
     Dosage: EVERY 4 DAYS SHE TAKES ? TABLET OF EUTHYROX 88 MCG IN ADDITION
     Dates: start: 20190930

REACTIONS (5)
  - Apathy [Recovered/Resolved]
  - Abnormal behaviour [Recovering/Resolving]
  - Fatigue [Recovering/Resolving]
  - Hypothyroidism [Recovering/Resolving]
  - Feeling cold [Recovering/Resolving]

NARRATIVE: CASE EVENT DATE: 2019
